FAERS Safety Report 22099930 (Version 2)
Quarter: 2023Q2

REPORT INFORMATION
  Report Type: Spontaneous
  Country: DE (occurrence: DE)
  Receive Date: 20230315
  Receipt Date: 20230426
  Transmission Date: 20230721
  Serious: Yes (Other)
  Sender: FDA-Public Use
  Company Number: DE-INCYTE CORPORATION-2023IN002516

PATIENT

DRUGS (5)
  1. TAFASITAMAB [Suspect]
     Active Substance: TAFASITAMAB
     Indication: Diffuse large B-cell lymphoma
     Dosage: UNK, 2 CYCLES
     Route: 065
     Dates: start: 202205, end: 202207
  2. LENALIDOMIDE [Suspect]
     Active Substance: LENALIDOMIDE
     Indication: Diffuse large B-cell lymphoma
     Dosage: UNK, 2 CYCLES
     Route: 048
     Dates: start: 202205, end: 202207
  3. GLOFITAMAB [Suspect]
     Active Substance: GLOFITAMAB
     Indication: Diffuse large B-cell lymphoma
     Dosage: UNK
     Route: 065
  4. GLOFITAMAB [Suspect]
     Active Substance: GLOFITAMAB
     Dosage: 10 MILLIGRAM FOR 15 DAYS
     Route: 065
  5. GLOFITAMAB [Suspect]
     Active Substance: GLOFITAMAB
     Dosage: UNK
     Route: 065

REACTIONS (6)
  - Urinary retention [Unknown]
  - Intestinal ischaemia [Unknown]
  - Upper gastrointestinal haemorrhage [Unknown]
  - Diffuse large B-cell lymphoma [Unknown]
  - Pneumonia [Unknown]
  - Disease progression [Unknown]

NARRATIVE: CASE EVENT DATE: 20220908
